FAERS Safety Report 15634560 (Version 1)
Quarter: 2018Q4

REPORT INFORMATION
  Report Type: Spontaneous
  Country: FR (occurrence: FR)
  Receive Date: 20181119
  Receipt Date: 20181119
  Transmission Date: 20190205
  Serious: Yes (Other)
  Sender: FDA-Public Use
  Company Number: FR-BIOGEN-2018BI00660526

PATIENT
  Age: 48 Year
  Sex: Female

DRUGS (2)
  1. LEVOTHYROX (LEVOTHYROXINE SODIQUE) [Concomitant]
     Indication: HYPOTHYROIDISM
     Route: 065
  2. TECFIDERA [Suspect]
     Active Substance: DIMETHYL FUMARATE
     Indication: MULTIPLE SCLEROSIS
     Route: 048
     Dates: start: 201408

REACTIONS (2)
  - Lichenoid keratosis [Not Recovered/Not Resolved]
  - Toxic skin eruption [Not Recovered/Not Resolved]

NARRATIVE: CASE EVENT DATE: 201506
